FAERS Safety Report 9229318 (Version 1)
Quarter: 2013Q2

REPORT INFORMATION
  Report Type: Spontaneous
  Country: US (occurrence: US)
  Receive Date: 20130412
  Receipt Date: 20130412
  Transmission Date: 20140414
  Serious: Yes (Death)
  Sender: FDA-Public Use
  Company Number: US-ASTELLAS-2013US003221

PATIENT
  Sex: Male

DRUGS (1)
  1. PROGRAF [Suspect]
     Indication: RENAL TRANSPLANT
     Dosage: 2 MG EVERY MORNING, 1 MG EVERY EVENING
     Route: 048
     Dates: start: 20080530, end: 20130128

REACTIONS (1)
  - Pneumonia [Fatal]
